FAERS Safety Report 16378818 (Version 1)
Quarter: 2019Q2

REPORT INFORMATION
  Report Type: Report from Study
  Country: US (occurrence: US)
  Receive Date: 20190531
  Receipt Date: 20190531
  Transmission Date: 20190711
  Serious: Yes (Hospitalization)
  Sender: FDA-Public Use
  Company Number: US-GILEAD-2019-0410937

PATIENT
  Age: 49 Year
  Sex: Male

DRUGS (15)
  1. AZTREONAM LYSINE [Suspect]
     Active Substance: AZTREONAM LYSINE
     Indication: CYSTIC FIBROSIS
     Dosage: 75MG VIA NEBULIZER TID, FOR 28 DAYS ON THEN 28 DAYS OFF. REPEAT AS DIRECTED.
     Route: 055
     Dates: start: 20140420
  2. PULMOZYME [Suspect]
     Active Substance: DORNASE ALFA
     Indication: CYSTIC FIBROSIS
     Dosage: UNKNOWN
     Route: 065
  3. LANSOPRAZOLE. [Concomitant]
     Active Substance: LANSOPRAZOLE
  4. NYSTATIN. [Concomitant]
     Active Substance: NYSTATIN
  5. PREDNISONE. [Concomitant]
     Active Substance: PREDNISONE
  6. LORAZEPAM. [Concomitant]
     Active Substance: LORAZEPAM
  7. LOSARTAN. [Concomitant]
     Active Substance: LOSARTAN
  8. METOPROLOL. [Concomitant]
     Active Substance: METOPROLOL
  9. OXYCODONE [Concomitant]
     Active Substance: OXYCODONE
  10. URSODIOL. [Concomitant]
     Active Substance: URSODIOL
  11. CETIRIZINE [Concomitant]
     Active Substance: CETIRIZINE HYDROCHLORIDE
  12. KALYDECO [Suspect]
     Active Substance: IVACAFTOR
     Indication: CYSTIC FIBROSIS
     Dosage: 150 MG TABLET, ONE TAB Q 12
     Route: 065
     Dates: start: 20190307
  13. VENTOLIN [Concomitant]
     Active Substance: ALBUTEROL SULFATE
  14. XARELTO [Concomitant]
     Active Substance: RIVAROXABAN
  15. ZENPEP [Concomitant]
     Active Substance: PANCRELIPASE AMYLASE\PANCRELIPASE LIPASE\PANCRELIPASE PROTEASE

REACTIONS (1)
  - Lung disorder [Unknown]

NARRATIVE: CASE EVENT DATE: 20190508
